FAERS Safety Report 6991995-0 (Version None)
Quarter: 2010Q3

REPORT INFORMATION
  Report Type: 
  Country: None (occurrence: None)
  Receive Date: 20100917
  Receipt Date: 20100907
  Transmission Date: 20110219
  Serious: Yes (Other)
  Sender: FDA-Public Use
  Company Number: AU-PFIZER INC-2010092106

PATIENT
  Sex: Male
  Weight: 126.5 kg

DRUGS (5)
  1. SUTENT [Suspect]
     Indication: RENAL CANCER
     Dosage: 37.5 MG, 1X/DAY
     Route: 048
     Dates: start: 20091101, end: 20100820
  2. METOPROLOL [Concomitant]
  3. ACETYLSALICYLIC ACID [Concomitant]
  4. PERINDOPRIL ERBUMINE [Concomitant]
  5. CRESTOR [Concomitant]

REACTIONS (1)
  - HYPERTRIGLYCERIDAEMIA [None]
